FAERS Safety Report 8928987 (Version 1)
Quarter: 2012Q4

REPORT INFORMATION
  Report Type: 
  Country: GB (occurrence: None)
  Receive Date: 20121120
  Receipt Date: 20121120
  Transmission Date: 20130627
  Serious: Yes (Other)
  Sender: FDA-Public Use
  Company Number: AUR-APL-2012-04845

PATIENT
  Age: 41 Year
  Sex: Male

DRUGS (1)
  1. FLUOXETINE [Suspect]
     Indication: DEPRESSION
     Dosage: (20 mg, 1 in 1 d)
     Route: 048

REACTIONS (4)
  - Amnesia [None]
  - Insomnia [None]
  - Pruritus generalised [None]
  - Feeling hot [None]
